FAERS Safety Report 4565282-4 (Version None)
Quarter: 2005Q1

REPORT INFORMATION
  Report Type: 
  Country: None (occurrence: None)
  Receive Date: 20050131
  Receipt Date: 20041118
  Transmission Date: 20050727
  Serious: Yes (Hospitalization, Disabling)
  Sender: FDA-Public Use
  Company Number: GB-MERCK-0411GBR00176

PATIENT
  Age: 88 Year
  Sex: Female
  Weight: 43 kg

DRUGS (5)
  1. FOSAMAX [Suspect]
     Route: 048
     Dates: start: 20021201
  2. FOSAMAX [Suspect]
     Route: 048
     Dates: start: 20041101, end: 20041101
  3. BENDROFLUMETHIAZIDE [Concomitant]
     Indication: HYPERTENSION
     Route: 065
     Dates: start: 20001101
  4. BECLOMETHASONE DIPROPIONATE [Concomitant]
     Indication: CHRONIC OBSTRUCTIVE PULMONARY DISEASE
     Route: 065
     Dates: start: 19980101
  5. ALBUTEROL [Concomitant]
     Indication: CHRONIC OBSTRUCTIVE PULMONARY DISEASE
     Route: 065
     Dates: start: 19980101

REACTIONS (2)
  - CEREBROVASCULAR ACCIDENT [None]
  - OVERDOSE [None]
